FAERS Safety Report 5631243-7 (Version None)
Quarter: 2008Q1

REPORT INFORMATION
  Report Type: 
  Country: None (occurrence: None)
  Receive Date: 20080131
  Receipt Date: 20071026
  Transmission Date: 20080703
  Serious: No
  Sender: FDA-Public Use
  Company Number: 163-21880-07101574

PATIENT
  Age: 86 Year
  Sex: Male

DRUGS (2)
  1. REVLIMID [Suspect]
     Indication: MULTIPLE MYELOMA
     Dosage: 25 MG, ONCE EVERY OTHER DAY FOR 21 DAYS, ORAL; 25 MG, ONCE EVERY 3RD DAY X 21 DAYS, ORAL
     Route: 048
     Dates: start: 20070601, end: 20071001
  2. REVLIMID [Suspect]
     Indication: MULTIPLE MYELOMA
     Dosage: 25 MG, ONCE EVERY OTHER DAY FOR 21 DAYS, ORAL; 25 MG, ONCE EVERY 3RD DAY X 21 DAYS, ORAL
     Route: 048
     Dates: start: 20071001

REACTIONS (2)
  - FATIGUE [None]
  - HYPOTHYROIDISM [None]
